FAERS Safety Report 5080985-3 (Version None)
Quarter: 2006Q3

REPORT INFORMATION
  Report Type: 
  Country: None (occurrence: None)
  Receive Date: 20060720
  Receipt Date: 20051208
  Transmission Date: 20061208
  Serious: Yes (Other)
  Sender: FDA-Public Use
  Company Number: 2005165909

PATIENT
  Age: 77 Year
  Sex: Female
  Weight: 65.7716 kg

DRUGS (3)
  1. CELEBREX [Suspect]
     Indication: ARTHRITIS
     Dosage: 200 MG (100 MG, 1 IN 1 D)
     Dates: start: 20050101, end: 20050101
  2. THYROID TAB [Concomitant]
  3. DIOVAN [Concomitant]

REACTIONS (7)
  - ABDOMINAL PAIN UPPER [None]
  - APPETITE DISORDER [None]
  - DIARRHOEA [None]
  - DYSPEPSIA [None]
  - GASTROINTESTINAL ULCER HAEMORRHAGE [None]
  - NAUSEA [None]
  - RENAL IMPAIRMENT [None]
